FAERS Safety Report 22197454 (Version 3)
Quarter: 2023Q2

REPORT INFORMATION
  Report Type: Spontaneous
  Country: GR (occurrence: None)
  Receive Date: 20230411
  Receipt Date: 20230512
  Transmission Date: 20230722
  Serious: Yes (Other)
  Sender: FDA-Public Use
  Company Number: 2023A079356

PATIENT
  Age: 65 Year
  Sex: Female

DRUGS (7)
  1. OMEPRAZOLE MAGNESIUM [Suspect]
     Active Substance: OMEPRAZOLE MAGNESIUM
     Indication: Gastrooesophageal reflux disease
     Route: 048
  2. COVID-19 VACCINE NOS [Suspect]
     Active Substance: COVID-19 VACCINE NOS
     Indication: COVID-19 immunisation
     Dosage: DOSE 1, SINGLE 1.0DF ONCE/SINGLE ADMINISTRATION
     Route: 030
     Dates: start: 20210416, end: 20210416
  3. EBASTINE [Suspect]
     Active Substance: EBASTINE
     Indication: Rhinitis
  4. METHOTREXATE [Suspect]
     Active Substance: METHOTREXATE
     Indication: Rheumatoid arthritis
     Dates: start: 202009
  5. EBASTINE [Suspect]
     Active Substance: EBASTINE
     Indication: Musculoskeletal stiffness
     Route: 048
  6. MEDROL [Suspect]
     Active Substance: METHYLPREDNISOLONE
     Indication: Rheumatoid arthritis
     Dates: start: 202009
  7. MEDROL [Suspect]
     Active Substance: METHYLPREDNISOLONE
     Indication: Rheumatoid arthritis
     Dosage: 8 DF, 1X/DAY; TWO PER DAY AND TWO MORE IN THE NIGHT
     Dates: start: 202009

REACTIONS (8)
  - Mobility decreased [Unknown]
  - Swelling [Unknown]
  - Pain [Recovering/Resolving]
  - Toothache [Unknown]
  - Paralysis [Recovering/Resolving]
  - Pyrexia [Unknown]
  - Arthralgia [Recovered/Resolved]
  - Alopecia [Unknown]

NARRATIVE: CASE EVENT DATE: 20210101
